FAERS Safety Report 21011042 (Version 3)
Quarter: 2022Q3

REPORT INFORMATION
  Report Type: Spontaneous
  Country: CL (occurrence: CL)
  Receive Date: 20220627
  Receipt Date: 20220816
  Transmission Date: 20221026
  Serious: Yes (Hospitalization, Other)
  Sender: FDA-Public Use
  Company Number: CL-PFIZER INC-PV202200008433

PATIENT
  Age: 31 Year
  Sex: Female

DRUGS (1)
  1. IBRANCE [Suspect]
     Active Substance: PALBOCICLIB
     Indication: Breast cancer
     Dosage: DAILY, SCHEME 3X1
     Route: 048
     Dates: start: 20220108, end: 2022

REACTIONS (3)
  - Pancreatitis [Unknown]
  - Neoplasm progression [Unknown]
  - Arthralgia [Unknown]

NARRATIVE: CASE EVENT DATE: 20220101
